FAERS Safety Report 8969518 (Version 1)
Quarter: 2012Q4

REPORT INFORMATION
  Report Type: 
  Country: BE (occurrence: BE)
  Receive Date: 20121218
  Receipt Date: 20121218
  Transmission Date: 20130627
  Serious: Yes (Other)
  Sender: FDA-Public Use
  Company Number: BE-RANBAXY-2012US-63394

PATIENT
  Age: 40 Year
  Sex: Male

DRUGS (6)
  1. FLECAINIDE [Suspect]
     Indication: ATRIAL FIBRILLATION
     Dosage: 100 mg, bid
     Route: 065
  2. METOPROLOL [Suspect]
     Indication: ATRIAL FIBRILLATION
     Dosage: 100 mg/day
     Route: 065
  3. SOTALOL [Suspect]
     Indication: ATRIAL FIBRILLATION
     Dosage: 160 mg, bid
     Route: 065
  4. WARFARIN [Suspect]
     Indication: ATRIAL FIBRILLATION
     Dosage: UNK
     Route: 065
  5. SALINE [Concomitant]
     Indication: PRODUCT USED FOR UNKNOWN INDICATION
     Dosage: UNK
     Route: 065
  6. HEPARIN [Concomitant]
     Indication: PRODUCT USED FOR UNKNOWN INDICATION
     Dosage: UNK
     Route: 065

REACTIONS (1)
  - Drug resistance [Recovered/Resolved]
